FAERS Safety Report 5995872-3 (Version None)
Quarter: 2008Q4

REPORT INFORMATION
  Report Type: 
  Country: None (occurrence: None)
  Receive Date: 20081212
  Receipt Date: 20081211
  Transmission Date: 20090506
  Serious: Yes (Life-Threatening, Hospitalization, Disabling, Other)
  Sender: FDA-Public Use
  Company Number: JP-B.I. PHARMACEUTICALS,INC./RIDGEFIELD-2008-BP-15151NB

PATIENT
  Sex: Male
  Weight: 62 kg

DRUGS (2)
  1. MICARDIS [Suspect]
     Indication: HYPERTENSION
     Dosage: 2400MG
     Route: 048
     Dates: start: 20080501, end: 20080929
  2. AMLODIN [Suspect]
     Dosage: 300MG
     Route: 048
     Dates: start: 20080928, end: 20080928

REACTIONS (8)
  - ABDOMINAL PAIN [None]
  - BLOOD PRESSURE DECREASED [None]
  - INTENTIONAL OVERDOSE [None]
  - LIVER DISORDER [None]
  - NAUSEA [None]
  - RENAL IMPAIRMENT [None]
  - SHOCK [None]
  - SUICIDE ATTEMPT [None]
